FAERS Safety Report 11937861 (Version 6)
Quarter: 2016Q4

REPORT INFORMATION
  Report Type: Report from Study
  Country: IT (occurrence: IT)
  Receive Date: 20160122
  Receipt Date: 20161118
  Transmission Date: 20170206
  Serious: Yes (Other)
  Sender: FDA-Public Use
  Company Number: IT-ROCHE-1650414

PATIENT
  Age: 65 Year
  Sex: Male
  Weight: 70 kg

DRUGS (4)
  1. PANTOPRAZOLE [Concomitant]
     Active Substance: PANTOPRAZOLE SODIUM
     Indication: PROPHYLAXIS
     Dosage: 40 MG DAILY FOR 8 MONTHS
     Route: 048
     Dates: start: 20150209
  2. VEMURAFENIB [Suspect]
     Active Substance: VEMURAFENIB
     Indication: METASTATIC MALIGNANT MELANOMA
     Route: 048
     Dates: start: 20150209, end: 20150403
  3. VEMURAFENIB [Suspect]
     Active Substance: VEMURAFENIB
     Route: 048
     Dates: start: 20150404, end: 20150821
  4. VEMURAFENIB [Suspect]
     Active Substance: VEMURAFENIB
     Route: 048
     Dates: start: 20150831, end: 20150901

REACTIONS (7)
  - Headache [Recovered/Resolved with Sequelae]
  - Blood creatinine increased [Recovered/Resolved]
  - Basal cell carcinoma [Not Recovered/Not Resolved]
  - Hyperkeratosis [Recovered/Resolved]
  - Photosensitivity reaction [Recovered/Resolved]
  - Dysarthria [Recovered/Resolved with Sequelae]
  - Electrocardiogram QT prolonged [Recovered/Resolved]

NARRATIVE: CASE EVENT DATE: 20150323
